FAERS Safety Report 14875243 (Version 1)
Quarter: 2018Q2

REPORT INFORMATION
  Report Type: Spontaneous
  Country: IT (occurrence: IT)
  Receive Date: 20180510
  Receipt Date: 20180510
  Transmission Date: 20180711
  Serious: Yes (Other)
  Sender: FDA-Public Use
  Company Number: IT-PFIZER INC-2018188802

PATIENT
  Age: 63 Year
  Sex: Male

DRUGS (2)
  1. TRIATEC (RAMIPRIL) [Suspect]
     Active Substance: RAMIPRIL
     Indication: CARDIAC DISORDER
     Dosage: 5 MG, UNK
     Route: 048
     Dates: start: 20180206, end: 20180323
  2. ZYLORIC [Suspect]
     Active Substance: ALLOPURINOL
     Indication: CARDIAC DISORDER
     Dosage: 300 MG, UNK
     Route: 048
     Dates: start: 20180206, end: 20180323

REACTIONS (5)
  - Drug hypersensitivity [Unknown]
  - Eyelid oedema [Recovering/Resolving]
  - Pruritus [Recovering/Resolving]
  - Dermatitis [Recovering/Resolving]
  - Localised oedema [Recovering/Resolving]

NARRATIVE: CASE EVENT DATE: 20180304
